FAERS Safety Report 4761039-X (Version None)
Quarter: 2005Q3

REPORT INFORMATION
  Report Type: 
  Country: None (occurrence: None)
  Receive Date: 20050901
  Receipt Date: 20050816
  Transmission Date: 20060218
  Serious: Yes (Other)
  Sender: FDA-Public Use
  Company Number: 206848

PATIENT
  Age: 57 Year
  Sex: Female

DRUGS (12)
  1. AVONEX [Suspect]
     Indication: MULTIPLE SCLEROSIS
     Dosage: 30 UG; QW; IM
     Route: 030
     Dates: start: 20000204, end: 20040101
  2. PROZAC [Concomitant]
  3. BACLOFEN [Concomitant]
  4. PROVIGIL [Concomitant]
  5. FOSAMAX [Concomitant]
  6. VICODIN [Concomitant]
  7. CLINDAMYCIN [Concomitant]
  8. ZOFRAN [Concomitant]
  9. PROMETHAZINE [Concomitant]
  10. NEULASTA [Concomitant]
  11. CYTOXAN [Concomitant]
  12. DOXYRUBICIN HCL [Concomitant]

REACTIONS (1)
  - BREAST CANCER FEMALE [None]
